FAERS Safety Report 6692870-1 (Version None)
Quarter: 2010Q2

REPORT INFORMATION
  Report Type: 
  Country: None (occurrence: None)
  Receive Date: 20100419
  Receipt Date: 20100409
  Transmission Date: 20101027
  Serious: Yes (Other)
  Sender: FDA-Public Use
  Company Number: 2010SP020861

PATIENT

DRUGS (1)
  1. ZEGERID OTC [Suspect]
     Dosage: PO
     Route: 048

REACTIONS (1)
  - DRUG HYPERSENSITIVITY [None]
